FAERS Safety Report 4726787-6 (Version None)
Quarter: 2005Q3

REPORT INFORMATION
  Report Type: 
  Country: None (occurrence: None)
  Receive Date: 20050725
  Receipt Date: 20050425
  Transmission Date: 20060218
  Serious: No
  Sender: FDA-Public Use
  Company Number: USA050496498

PATIENT
  Sex: Male

DRUGS (6)
  1. PROZAC [Suspect]
  2. STRATTERA [Suspect]
     Indication: ATTENTION DEFICIT/HYPERACTIVITY DISORDER
     Dosage: 120 MG DAY
  3. GLYBURIDE [Concomitant]
  4. LAMICTAL [Concomitant]
  5. CHOLESTEROL [Concomitant]
  6. ASPIRIN [Concomitant]

REACTIONS (6)
  - AGITATION [None]
  - BLOOD TESTOSTERONE DECREASED [None]
  - DRUG INEFFECTIVE [None]
  - FEELING JITTERY [None]
  - LIBIDO DECREASED [None]
  - PRESCRIBED OVERDOSE [None]
